FAERS Safety Report 24245028 (Version 1)
Quarter: 2024Q3

REPORT INFORMATION
  Report Type: Report from Study
  Country: FR (occurrence: FR)
  Receive Date: 20240823
  Receipt Date: 20240823
  Transmission Date: 20241017
  Serious: Yes (Other)
  Sender: GILEAD
  Company Number: None

PATIENT
  Age: 68 Year
  Sex: Female
  Weight: 55 kg

DRUGS (1)
  1. SACITUZUMAB GOVITECAN-HZIY [Suspect]
     Active Substance: SACITUZUMAB GOVITECAN-HZIY
     Indication: Neoplasm malignant
     Dosage: UNK
     Route: 042
     Dates: start: 20240607

REACTIONS (2)
  - Neutropenia [Recovered/Resolved]
  - Gastrointestinal disorder [Recovered/Resolved]

NARRATIVE: CASE EVENT DATE: 20240626
